FAERS Safety Report 7710757-X (Version None)
Quarter: 2011Q3

REPORT INFORMATION
  Report Type: 
  Country: None (occurrence: None)
  Receive Date: 20110825
  Receipt Date: 20110118
  Transmission Date: 20111222
  Serious: Yes (Hospitalization)
  Sender: FDA-Public Use
  Company Number: NO-BAYER-2011-005652

PATIENT
  Age: 60 Year
  Sex: Male

DRUGS (1)
  1. ACETYLSALICYLIC ACID SRT [Suspect]
     Indication: HEADACHE
     Route: 048
     Dates: start: 20101222, end: 20101222

REACTIONS (11)
  - ERYTHEMA [None]
  - OROPHARYNGEAL DISCOMFORT [None]
  - LIP SWELLING [None]
  - EYE SWELLING [None]
  - SWOLLEN TONGUE [None]
  - SKIN DISORDER [None]
  - FATIGUE [None]
  - PHARYNGEAL OEDEMA [None]
  - ORAL DISCOMFORT [None]
  - URTICARIA [None]
  - HYPERSENSITIVITY [None]
